FAERS Safety Report 7022472-9 (Version None)
Quarter: 2010Q3

REPORT INFORMATION
  Report Type: 
  Country: None (occurrence: None)
  Receive Date: 20100930
  Receipt Date: 20100918
  Transmission Date: 20110219
  Serious: Yes (Hospitalization)
  Sender: FDA-Public Use
  Company Number: US-PFIZER INC-2010104827

PATIENT
  Sex: Female
  Weight: 73.8 kg

DRUGS (5)
  1. SUNITINIB MALATE [Suspect]
     Indication: GLIOBLASTOMA
     Dosage: 37.5 MG, 1X/DAY
     Route: 048
     Dates: start: 20100728, end: 20100816
  2. DECADRON [Concomitant]
     Dosage: 4 MG, AM; 2MG, PM; 2X/DAY
     Dates: start: 20100720
  3. METOPROLOL [Concomitant]
     Dosage: 100 MG, 2X/DAY
     Dates: start: 20030101
  4. KEPPRA [Concomitant]
     Dosage: 500 MG, 2X/DAY
     Dates: start: 20100128
  5. PEPCID [Concomitant]
     Dosage: 20 MG, AS NEEDED
     Dates: start: 20100720

REACTIONS (5)
  - LEFT VENTRICULAR DYSFUNCTION [None]
  - PULMONARY EMBOLISM [None]
  - PULMONARY HYPERTENSION [None]
  - SINUS BRADYCARDIA [None]
  - TROPONIN I INCREASED [None]
